FAERS Safety Report 4613925-9 (Version None)
Quarter: 2005Q1

REPORT INFORMATION
  Report Type: 
  Country: None (occurrence: None)
  Receive Date: 20050321
  Receipt Date: 20050310
  Transmission Date: 20050727
  Serious: Yes (Other)
  Sender: FDA-Public Use
  Company Number: ES-GLAXOSMITHKLINE-B0375227A

PATIENT
  Age: 40 Year
  Sex: Female

DRUGS (2)
  1. LAMICTAL [Suspect]
     Indication: BIPOLAR DISORDER
     Dosage: 400MG PER DAY
     Route: 048
  2. VENLAFAXINE HCL [Concomitant]
     Indication: BIPOLAR DISORDER
     Dosage: 150MG PER DAY
     Route: 065

REACTIONS (1)
  - BLINDNESS [None]
